FAERS Safety Report 25597783 (Version 1)
Quarter: 2025Q3

REPORT INFORMATION
  Report Type: Spontaneous
  Country: EU (occurrence: EU)
  Receive Date: 20250723
  Receipt Date: 20250723
  Transmission Date: 20251021
  Serious: Yes (Other)
  Sender: FERRING
  Company Number: EU-FERRINGPH-2025FE03912

PATIENT

DRUGS (1)
  1. SOMATROPIN [Suspect]
     Active Substance: SOMATROPIN
     Indication: Prader-Willi syndrome
     Route: 065

REACTIONS (2)
  - Cutis verticis gyrata [Recovering/Resolving]
  - Product use in unapproved indication [Unknown]
